FAERS Safety Report 23159925 (Version 1)
Quarter: 2023Q4

REPORT INFORMATION
  Report Type: Report from Study
  Country: DE (occurrence: DE)
  Receive Date: 20231108
  Receipt Date: 20231108
  Transmission Date: 20240110
  Serious: Yes (Other)
  Sender: FDA-Public Use
  Company Number: DE-VERTEX PHARMACEUTICALS-2023-016742

PATIENT
  Age: 6 Year
  Sex: Female
  Weight: 18 kg

DRUGS (6)
  1. ELEXACAFTOR\IVACAFTOR\TEZACAFTOR [Suspect]
     Active Substance: ELEXACAFTOR\IVACAFTOR\TEZACAFTOR
     Indication: Cystic fibrosis
     Dosage: 2 TABS AM
     Route: 048
     Dates: start: 20230613, end: 2023
  2. ELEXACAFTOR\IVACAFTOR\TEZACAFTOR [Suspect]
     Active Substance: ELEXACAFTOR\IVACAFTOR\TEZACAFTOR
     Dosage: 1 TAB AM
     Route: 048
     Dates: start: 20230831, end: 2023
  3. ELEXACAFTOR\IVACAFTOR\TEZACAFTOR [Suspect]
     Active Substance: ELEXACAFTOR\IVACAFTOR\TEZACAFTOR
     Dosage: DOSE INCREASED, 2 TABS AM
     Route: 048
     Dates: start: 20231010
  4. KALYDECO [Suspect]
     Active Substance: IVACAFTOR
     Indication: Cystic fibrosis
     Dosage: 75MG IVACAFTOR PM
     Route: 048
     Dates: start: 20230613, end: 2023
  5. KALYDECO [Suspect]
     Active Substance: IVACAFTOR
     Dosage: 75MG IVACAFTOR PM
     Route: 048
     Dates: start: 20230831, end: 2023
  6. KALYDECO [Suspect]
     Active Substance: IVACAFTOR
     Dosage: 75MG IVACAFTOR PM
     Route: 048
     Dates: start: 20231018

REACTIONS (1)
  - Psychomotor hyperactivity [Recovered/Resolved]

NARRATIVE: CASE EVENT DATE: 20230831
